FAERS Safety Report 6557678-6 (Version None)
Quarter: 2010Q1

REPORT INFORMATION
  Report Type: 
  Country: None (occurrence: None)
  Receive Date: 20100129
  Receipt Date: 20100125
  Transmission Date: 20100710
  Serious: Yes (Other)
  Sender: FDA-Public Use
  Company Number: FR-BRISTOL-MYERS SQUIBB COMPANY-14953053

PATIENT
  Age: 39 Year
  Sex: Female

DRUGS (5)
  1. COUMADIN [Suspect]
     Indication: THROMBOSIS
     Dates: start: 20090517, end: 20090709
  2. KARDEGIC [Suspect]
     Indication: THROMBOSIS
  3. NEXIUM [Concomitant]
  4. SPASFON [Concomitant]
     Dates: start: 20090630
  5. PRIMERAN [Concomitant]

REACTIONS (2)
  - ABORTION INDUCED [None]
  - PREGNANCY [None]
